FAERS Safety Report 9280782 (Version 2)
Quarter: 2013Q2

REPORT INFORMATION
  Report Type: Spontaneous
  Country: US (occurrence: US)
  Receive Date: 20130509
  Receipt Date: 20130515
  Transmission Date: 20140414
  Serious: Yes (Hospitalization)
  Sender: FDA-Public Use
  Company Number: US-PFIZER INC-2013143640

PATIENT
  Age: 61 Year
  Sex: Female
  Weight: 87 kg

DRUGS (2)
  1. PROTONIX [Suspect]
     Indication: COELIAC DISEASE
     Dosage: 40 MG, 1X/DAY
     Dates: start: 2010, end: 2013
  2. ALBUTEROL [Concomitant]
     Indication: ASTHMA
     Dosage: UNK, 1X/DAY

REACTIONS (2)
  - Haemoglobin decreased [Unknown]
  - Off label use [Unknown]
